FAERS Safety Report 9908590 (Version 1)
Quarter: 2014Q1

REPORT INFORMATION
  Report Type: Spontaneous
  Country: US (occurrence: US)
  Receive Date: 20140219
  Receipt Date: 20140219
  Transmission Date: 20141002
  Serious: Yes (Hospitalization, Other)
  Sender: FDA-Public Use
  Company Number: US-ASTRAZENECA-2014SE09897

PATIENT
  Age: 48 Year
  Sex: Male
  Weight: 104.3 kg

DRUGS (4)
  1. NEXIUM [Suspect]
     Indication: GASTROOESOPHAGEAL REFLUX DISEASE
     Route: 048
     Dates: start: 2009
  2. NEXIUM [Suspect]
     Indication: GASTROOESOPHAGEAL REFLUX DISEASE
     Dosage: TAKING INTERMITTENTLY, WILL TAKE FOR 3 TO 6 MONTHS AND THEN STOP WHEN SYMPTOMS ARE RESOLVED
     Route: 048
     Dates: start: 2009
  3. LORATADINE [Concomitant]
     Indication: MULTIPLE ALLERGIES
     Route: 048
     Dates: start: 2009
  4. ANTIBIOTICS [Concomitant]

REACTIONS (6)
  - Arnold-Chiari malformation [Unknown]
  - Pneumonia aspiration [Unknown]
  - Raynaud^s phenomenon [Unknown]
  - Clostridium difficile infection [Unknown]
  - Disease recurrence [Unknown]
  - Intentional drug misuse [Unknown]
